FAERS Safety Report 7399094-3 (Version None)
Quarter: 2011Q2

REPORT INFORMATION
  Report Type: 
  Country: None (occurrence: None)
  Receive Date: 20110407
  Receipt Date: 20091122
  Transmission Date: 20111010
  Serious: Yes (Death, Other)
  Sender: FDA-Public Use
  Company Number: US-BAYER-200940555NA

PATIENT
  Sex: Female
  Weight: 57 kg

DRUGS (40)
  1. FRESH FROZEN PLASMA [Concomitant]
     Dosage: 4 U, UNK
     Dates: start: 20040127
  2. CALCIUM CHLORIDE [Concomitant]
     Dosage: UNK
     Route: 042
     Dates: start: 20040127
  3. TRASYLOL [Suspect]
     Indication: MITRAL VALVE REPLACEMENT
     Dosage: PRIME 2X10 (6) K/U
     Route: 042
     Dates: start: 20040127, end: 20040127
  4. FUROSEMIDE [Concomitant]
     Dosage: 40 MG, QD
     Route: 048
  5. LOPRESSOR [Concomitant]
     Route: 048
  6. MELATONIN [Concomitant]
     Dosage: 2 MG, HS
  7. MAGNESIUM SULFATE [Concomitant]
     Dosage: UNK
     Route: 042
     Dates: start: 20040127
  8. MILRINONE [Concomitant]
     Dosage: UNK
     Route: 042
     Dates: start: 20040127
  9. FRESH FROZEN PLASMA [Concomitant]
     Dosage: 2 U, UNK
     Dates: start: 20040128
  10. OPTIRAY 350 [Concomitant]
     Indication: CATHETERISATION CARDIAC
     Dosage: 85 ML, UNK
     Dates: start: 20040123
  11. MANNITOL [Concomitant]
     Dosage: UNK
     Route: 042
     Dates: start: 20040127
  12. DIGOXIN [Concomitant]
     Dosage: UNK
     Route: 042
     Dates: start: 20040127
  13. THEO-DUR [Concomitant]
     Dosage: 300 MG, BID
     Route: 048
  14. INSULIN [INSULIN] [Concomitant]
     Dosage: UNK
     Route: 042
     Dates: start: 20040127
  15. ETOMIDATE [Concomitant]
     Dosage: UNK
     Route: 042
     Dates: start: 20040127
  16. POTASSIUM CHLORIDE [Concomitant]
     Dosage: UNK
     Route: 042
     Dates: start: 20040127
  17. VENLAFAXINE HCL [Concomitant]
     Dosage: 150 MG, QD
     Route: 048
  18. FENTANYL [Concomitant]
     Dosage: UNK
     Route: 042
     Dates: start: 20040127
  19. CEFUROXIME [Concomitant]
     Dosage: UNK
     Route: 042
     Dates: start: 20040127
  20. PROTAMINE SULFATE [Concomitant]
     Dosage: UNK
     Route: 042
     Dates: start: 20040127
  21. EPINEPHRINE [Concomitant]
     Dosage: UNK
     Route: 042
     Dates: start: 20040127
  22. RED BLOOD CELLS [Concomitant]
     Dosage: 8 U, UNK
     Dates: start: 20040127
  23. DIGOXIN [Concomitant]
     Dosage: 0.25 MG, QD
     Route: 048
  24. SULINDAC [Concomitant]
     Dosage: 200 MG, BID
     Route: 048
  25. PRIMIDONE [Concomitant]
     Dosage: 250 MG, TID
     Route: 048
  26. ATROPINE [Concomitant]
     Dosage: UNK
     Route: 042
     Dates: start: 20040127
  27. NOREPINEPHRINE BITARTRATE [Concomitant]
     Dosage: UNK
     Route: 042
     Dates: start: 20040127
  28. PANCURONIUM BROMIDE [Concomitant]
     Dosage: UNK
     Route: 042
     Dates: start: 20040127
  29. HEPARIN [Concomitant]
     Dosage: UNK
     Route: 042
     Dates: start: 20040127
  30. CRYOPRECIPITATES [Concomitant]
     Dosage: 11 U, UNK
     Dates: start: 20040128
  31. ALBUTEROL [Concomitant]
     Dosage: INHALATION
     Route: 055
  32. VERAPAMIL [Concomitant]
     Dosage: UNK
     Route: 042
     Dates: start: 20040127
  33. PLATELETS [Concomitant]
     Dosage: 1 U, UNK
     Dates: start: 20040127
  34. PLATELETS [Concomitant]
     Dosage: 2 U, UNK
     Dates: start: 20040128
  35. SODIUM BICARBONATE [Concomitant]
     Dosage: UNK
     Route: 042
     Dates: start: 20040127
  36. ACETYLSALICYLIC ACID SRT [Concomitant]
     Dosage: 80 MG, QD
     Route: 048
  37. MIDAZOLAM [Concomitant]
     Dosage: UNK
     Route: 042
     Dates: start: 20040127
  38. BACITRACIN [Concomitant]
     Dosage: UNK
     Route: 042
     Dates: start: 20040127
  39. SUCCINYLCHOLINE CHLORIDE [Concomitant]
     Dosage: UNK
     Dates: start: 20040127
  40. VECURONIUM BROMIDE [Concomitant]
     Dosage: UNK
     Route: 042
     Dates: start: 20040127

REACTIONS (13)
  - RENAL FAILURE [None]
  - ANXIETY [None]
  - UNEVALUABLE EVENT [None]
  - ANHEDONIA [None]
  - DEATH [None]
  - RENAL IMPAIRMENT [None]
  - FEAR [None]
  - INJURY [None]
  - MULTI-ORGAN FAILURE [None]
  - STRESS [None]
  - EMOTIONAL DISTRESS [None]
  - RENAL INJURY [None]
  - PAIN [None]
